FAERS Safety Report 5628222-2 (Version None)
Quarter: 2008Q1

REPORT INFORMATION
  Report Type: 
  Country: None (occurrence: None)
  Receive Date: 20080215
  Receipt Date: 20080211
  Transmission Date: 20080703
  Serious: Yes (Other)
  Sender: FDA-Public Use
  Company Number: US-PFIZER INC-2008012833

PATIENT
  Sex: Male

DRUGS (1)
  1. NICOTROL [Suspect]

REACTIONS (2)
  - EPISTAXIS [None]
  - VOMITING [None]
